FAERS Safety Report 9237250 (Version 1)
Quarter: 2013Q2

REPORT INFORMATION
  Report Type: Spontaneous
  Country: DE (occurrence: DE)
  Receive Date: 20130417
  Receipt Date: 20130417
  Transmission Date: 20140414
  Serious: Yes (Hospitalization)
  Sender: FDA-Public Use
  Company Number: DE-MYLANLABS-2013S1007352

PATIENT
  Age: 55 Year
  Sex: Male

DRUGS (2)
  1. VENLAFAXINE [Suspect]
     Indication: GENERALISED ANXIETY DISORDER
     Dosage: INCREASED TO 375MG/DAY PRIOR TO ADMISSION
     Route: 065
  2. TRAZODONE [Concomitant]
     Indication: GENERALISED ANXIETY DISORDER
     Dosage: INCREASED TO 75MG/DAILY PRIOR TO ADMISSIONS
     Route: 065

REACTIONS (5)
  - Hypertension [Recovered/Resolved]
  - Tremor [Recovering/Resolving]
  - Akathisia [Recovering/Resolving]
  - Antidepressant drug level above therapeutic [Recovering/Resolving]
  - Catecholamines urine increased [Recovering/Resolving]
